FAERS Safety Report 4726101-6 (Version None)
Quarter: 2005Q3

REPORT INFORMATION
  Report Type: 
  Country: None (occurrence: None)
  Receive Date: 20050726
  Receipt Date: 20050726
  Transmission Date: 20060218
  Serious: Yes (Disabling)
  Sender: FDA-Public Use
  Company Number: None

PATIENT
  Age: 52 Year
  Sex: Male
  Weight: 72.5755 kg

DRUGS (3)
  1. WELLBUTRIN [Suspect]
     Indication: BEREAVEMENT REACTION
     Dosage: UP TO 225 MG ORAL
     Route: 048
     Dates: start: 20040101, end: 20040115
  2. WELLBUTRIN [Suspect]
     Indication: DEPRESSION
     Dosage: UP TO 225 MG ORAL
     Route: 048
     Dates: start: 20040101, end: 20040115
  3. NUMEROUS PRODUCTS [Concomitant]

REACTIONS (1)
  - TINNITUS [None]
